FAERS Safety Report 17860296 (Version 2)
Quarter: 2020Q4

REPORT INFORMATION
  Report Type: Spontaneous
  Country: US (occurrence: US)
  Receive Date: 20200604
  Receipt Date: 20201215
  Transmission Date: 20210113
  Serious: Yes (Death, Other)
  Sender: FDA-Public Use
  Company Number: US-SA-2020SA138978

PATIENT

DRUGS (1)
  1. RANITIDINE HYDROCHLORIDE. [Suspect]
     Active Substance: RANITIDINE HYDROCHLORIDE
     Dosage: UNK
     Dates: start: 199801, end: 201501

REACTIONS (5)
  - Pancreatic carcinoma [Fatal]
  - Pain [Unknown]
  - Emotional distress [Unknown]
  - Quality of life decreased [Unknown]
  - Injury [Unknown]

NARRATIVE: CASE EVENT DATE: 201402
